FAERS Safety Report 4357334-9 (Version None)
Quarter: 2004Q2

REPORT INFORMATION
  Report Type: 
  Country: None (occurrence: None)
  Receive Date: 20040507
  Receipt Date: 20040416
  Transmission Date: 20050107
  Serious: Yes (Hospitalization)
  Sender: FDA-Public Use
  Company Number: US_0404102397

PATIENT
  Age: 54 Year
  Weight: 100 kg

DRUGS (3)
  1. HUMULIN N [Suspect]
     Dosage: 30 U/2 DAY
     Dates: start: 19980101
  2. HUMULIN R [Suspect]
     Dosage: 30 U/2 DAY
     Dates: start: 19980101
  3. NOVOLIN R [Concomitant]

REACTIONS (2)
  - ANGIOPLASTY [None]
  - VASCULAR OCCLUSION [None]
